FAERS Safety Report 4645785-4 (Version None)
Quarter: 2005Q2

REPORT INFORMATION
  Report Type: 
  Country: None (occurrence: None)
  Receive Date: 20050422
  Receipt Date: 20050422
  Transmission Date: 20051028
  Serious: Yes (Other)
  Sender: FDA-Public Use
  Company Number: None

PATIENT
  Age: 66 Year
  Sex: Female
  Weight: 92.1 kg

DRUGS (13)
  1. OXYBUTYNIN CHLORIDE [Suspect]
  2. OMEPRAZOLE [Concomitant]
  3. AMLODIPINE BESYLATE [Concomitant]
  4. METOPROLOL TARTRATE [Concomitant]
  5. NITROGLYCERIN [Concomitant]
  6. OXYBUTYNIN CHLORIDE [Concomitant]
  7. HYDROCHLOROTHIAZIDE [Concomitant]
  8. METFORMIN HCL [Concomitant]
  9. FOSINOPRIL [Concomitant]
  10. ISOSORBIDE MONONITRATE [Concomitant]
  11. SIMVASTATIN [Concomitant]
  12. CLOPIDOGREL BISULFATE [Concomitant]
  13. GLYBURIDE [Concomitant]

REACTIONS (1)
  - DRY MOUTH [None]
